FAERS Safety Report 7799685-1 (Version None)
Quarter: 2011Q4

REPORT INFORMATION
  Report Type: 
  Country: None (occurrence: None)
  Receive Date: 20111006
  Receipt Date: 20110925
  Transmission Date: 20120403
  Serious: Yes (Hospitalization)
  Sender: FDA-Public Use
  Company Number: AU-ELI_LILLY_AND_COMPANY-AU201109007232

PATIENT
  Sex: Male
  Weight: 67 kg

DRUGS (2)
  1. GEMCITABINE HYDROCHLORIDE [Suspect]
     Indication: NON-SMALL CELL LUNG CANCER STAGE IV
     Dosage: 1710 MG, 21 DAYS/CYCLE
     Route: 042
     Dates: start: 20110701
  2. CISPLATIN [Suspect]
     Indication: NON-SMALL CELL LUNG CANCER STAGE IV
     Dosage: 138 MG, 21 DAYS/CYLE
     Route: 042
     Dates: start: 20110701

REACTIONS (1)
  - DIZZINESS [None]
